FAERS Safety Report 24358790 (Version 2)
Quarter: 2024Q3

REPORT INFORMATION
  Report Type: Spontaneous
  Country: US (occurrence: US)
  Receive Date: 20240924
  Receipt Date: 20240927
  Transmission Date: 20241017
  Serious: Yes (Death, Hospitalization)
  Sender: PFIZER
  Company Number: US-SEATTLE GENETICS-2018SGN02724

PATIENT
  Age: 51 Year
  Sex: Male

DRUGS (5)
  1. ADCETRIS [Suspect]
     Active Substance: BRENTUXIMAB VEDOTIN
     Dosage: 149 MG, DAY 1 AND 15 EVERY 28 DAYS (2 DOSES)
     Route: 042
     Dates: start: 20181017
  2. DOXORUBICIN HYDROCHLORIDE [Suspect]
     Active Substance: DOXORUBICIN HYDROCHLORIDE
     Dosage: 2 DOSES
     Route: 065
  3. DACARBAZINE [Suspect]
     Active Substance: DACARBAZINE
     Dosage: 2 DOSES
     Route: 065
  4. VINBLASTINE [Suspect]
     Active Substance: VINBLASTINE
     Dosage: 2 DOSES
     Route: 065
  5. ALLOPURINOL [Concomitant]
     Active Substance: ALLOPURINOL
     Dosage: 300 MG, QD
     Route: 048

REACTIONS (3)
  - Febrile neutropenia [Fatal]
  - Abdominal pain [Unknown]
  - Leukopenia [Unknown]

NARRATIVE: CASE EVENT DATE: 20181018
